FAERS Safety Report 25306995 (Version 1)
Quarter: 2025Q2

REPORT INFORMATION
  Report Type: Spontaneous
  Country: US (occurrence: None)
  Receive Date: 20250513
  Receipt Date: 20250513
  Transmission Date: 20250717
  Serious: No
  Sender: FDA-CTU
  Company Number: None

PATIENT

DRUGS (1)
  1. HUMULIN R [Suspect]
     Active Substance: INSULIN HUMAN

REACTIONS (1)
  - Insulin resistant diabetes [None]

NARRATIVE: CASE EVENT DATE: 20250512
